FAERS Safety Report 17857695 (Version 2)
Quarter: 2020Q2

REPORT INFORMATION
  Report Type: Report from Study
  Country: AU (occurrence: AU)
  Receive Date: 20200604
  Receipt Date: 20200624
  Transmission Date: 20200714
  Serious: Yes (Hospitalization)
  Sender: FDA-Public Use
  Company Number: AU-BAXTER-2020BAX011392

PATIENT
  Age: 2 Year
  Sex: Male
  Weight: 11.3 kg

DRUGS (22)
  1. ENDOXAN CYCLOPHOSPHAMIDE 2G (AS MONOHYDRATE) POWDER FOR INJECTION VIAL [Suspect]
     Active Substance: CYCLOPHOSPHAMIDE
     Indication: NEUROBLASTOMA
  2. VENETOCLAX. [Suspect]
     Active Substance: VENETOCLAX
     Indication: RECURRENT CANCER
     Dosage: DOSAGE FORM: TABLET FOR ORAL SUSPENSION, ROUTE: NASOGASTRIC
     Route: 050
     Dates: start: 20200508
  3. ENDOXAN CYCLOPHOSPHAMIDE 2G (AS MONOHYDRATE) POWDER FOR INJECTION VIAL [Suspect]
     Active Substance: CYCLOPHOSPHAMIDE
     Indication: REFRACTORY CANCER
     Route: 042
  4. OXYCODONE [Concomitant]
     Active Substance: OXYCODONE
     Indication: PAIN
     Dosage: ROUTE: NASOGASTRIC
     Route: 050
     Dates: start: 20200507
  5. TOPOTECAN HYDROCHLORIDE. [Suspect]
     Active Substance: TOPOTECAN HYDROCHLORIDE
     Indication: RECURRENT CANCER
  6. SODIUM BICARBONATE. [Concomitant]
     Active Substance: SODIUM BICARBONATE
     Indication: DRUG THERAPY
     Route: 048
     Dates: start: 20200507
  7. LUGOL [Concomitant]
     Active Substance: IODINE\POTASSIUM IODIDE
     Indication: SCAN
     Dosage: DOSE: 2 DROPS, DAILY DOSE: 2 DROPS
     Route: 048
     Dates: start: 20200508
  8. ALLOPURINOL. [Concomitant]
     Active Substance: ALLOPURINOL
     Indication: PROPHYLAXIS
     Route: 042
     Dates: start: 20200507, end: 20200511
  9. ENDOXAN CYCLOPHOSPHAMIDE 2G (AS MONOHYDRATE) POWDER FOR INJECTION VIAL [Suspect]
     Active Substance: CYCLOPHOSPHAMIDE
     Indication: RECURRENT CANCER
     Route: 042
     Dates: start: 20200509
  10. CHLORSIG [Concomitant]
     Active Substance: CHLORAMPHENICOL
     Indication: ANTIBIOTIC THERAPY
     Dosage: OPHTHALMIC, APPLICATION TO RIGHT EYE, DOSE: 1
     Route: 061
     Dates: start: 20200509
  11. HEPARIN SALINE LOCK [Concomitant]
     Indication: PROPHYLAXIS
     Dosage: 50 UI /5 ML
     Route: 042
     Dates: start: 20200507
  12. UROMITEXAN MESNA 400MG_4ML INJECTION AMPOULE [Suspect]
     Active Substance: MESNA
     Indication: PROPHYLAXIS
     Route: 042
     Dates: start: 20200509
  13. TOPOTECAN HYDROCHLORIDE. [Suspect]
     Active Substance: TOPOTECAN HYDROCHLORIDE
     Indication: REFRACTORY CANCER
     Route: 042
     Dates: start: 20200509
  14. METOCLOPRAMIDE. [Concomitant]
     Active Substance: METOCLOPRAMIDE
     Indication: PROPHYLAXIS OF NAUSEA AND VOMITING
     Route: 042
     Dates: start: 20200509
  15. ACICLOVIR [Concomitant]
     Active Substance: ACYCLOVIR
     Indication: INFECTION PROPHYLAXIS
     Dosage: ROUTE: NASOGASTRIC
     Route: 050
     Dates: start: 20200408
  16. PEGFILGRASTIM [Concomitant]
     Active Substance: PEGFILGRASTIM
     Indication: PROPHYLAXIS
     Dosage: STAT
     Route: 042
     Dates: start: 20200514, end: 20200514
  17. BACTRIM [Concomitant]
     Active Substance: SULFAMETHOXAZOLE\TRIMETHOPRIM
     Indication: PROPHYLAXIS
     Dosage: ROUTE: NASOGASTRIC
     Route: 050
     Dates: start: 20200320
  18. ONDANSETRON [Concomitant]
     Active Substance: ONDANSETRON
     Indication: PROPHYLAXIS OF NAUSEA AND VOMITING
     Route: 042
     Dates: start: 20200430
  19. DOXIL [Suspect]
     Active Substance: DOXORUBICIN HYDROCHLORIDE
     Indication: NEUROBLASTOMA
     Route: 065
  20. VENETOCLAX. [Suspect]
     Active Substance: VENETOCLAX
     Indication: REFRACTORY CANCER
     Dosage: DOSAGE FORM: TABLET FOR ORAL SUSPENSION, ROUTE: NASOGASTRIC
     Route: 050
     Dates: start: 20200507, end: 20200507
  21. NILSTAT [Concomitant]
     Active Substance: NYSTATIN
     Indication: ANTIFUNGAL TREATMENT
     Route: 048
     Dates: start: 20200507
  22. PARACETAMOL [Concomitant]
     Active Substance: ACETAMINOPHEN
     Indication: TUMOUR PAIN
     Dosage: ROUTE: NASOGASTRIC
     Route: 050
     Dates: start: 20200324

REACTIONS (1)
  - Febrile neutropenia [Recovered/Resolved]

NARRATIVE: CASE EVENT DATE: 20200518
